FAERS Safety Report 13981017 (Version 1)
Quarter: 2017Q3

REPORT INFORMATION
  Report Type: Spontaneous
  Country: US (occurrence: None)
  Receive Date: 20170915
  Receipt Date: 20170915
  Transmission Date: 20171128
  Serious: Yes (Hospitalization)
  Sender: FDA-Public Use
  Company Number: None

PATIENT
  Age: 78 Year
  Sex: Male

DRUGS (25)
  1. POT CITRATE [Concomitant]
     Active Substance: POTASSIUM CITRATE
  2. BENZONATATE. [Concomitant]
     Active Substance: BENZONATATE
  3. METHOTREXATE. [Concomitant]
     Active Substance: METHOTREXATE
  4. CEPHALEXIN. [Concomitant]
     Active Substance: CEPHALEXIN
  5. VIRTUSSIN [Concomitant]
  6. DEEP SEA [Concomitant]
  7. HYOSCYAMINE. [Concomitant]
     Active Substance: HYOSCYAMINE
  8. VENTOLIN HFA [Concomitant]
     Active Substance: ALBUTEROL SULFATE
  9. CICLOPIROX. [Concomitant]
     Active Substance: CICLOPIROX
  10. CIPROFLOXACIN. [Concomitant]
     Active Substance: CIPROFLOXACIN
  11. DOXYCYCL HYC [Concomitant]
  12. VENLAFAXINE [Concomitant]
     Active Substance: VENLAFAXINE HYDROCHLORIDE
  13. ALLOPURINOL. [Concomitant]
     Active Substance: ALLOPURINOL
  14. DOK [Concomitant]
     Active Substance: DOCUSATE SODIUM
  15. FLUOROURACIL. [Concomitant]
     Active Substance: FLUOROURACIL
  16. GAVILYTE G [Concomitant]
     Active Substance: POLYETHYLENE GLYCOL 3350\POTASSIUM CHLORIDE\SODIUM BICARBONATE\SODIUM CHLORIDE\SODIUM SULFATE ANHYDROUS
  17. GEMFIBROZIL. [Concomitant]
     Active Substance: GEMFIBROZIL
  18. HYDROCO/APAP [Concomitant]
     Active Substance: ACETAMINOPHEN\HYDROCODONE
  19. TAMSULOSIN [Concomitant]
     Active Substance: TAMSULOSIN
  20. ESBRIET [Suspect]
     Active Substance: PIRFENIDONE
     Indication: IDIOPATHIC PULMONARY FIBROSIS
     Dosage: 3 CAPSULES TID ORAL
     Route: 048
     Dates: start: 20151006
  21. NIRTOFURANTN [Concomitant]
  22. MOMETASONE [Concomitant]
     Active Substance: MOMETASONE
  23. MONUROL [Concomitant]
     Active Substance: FOSFOMYCIN TROMETHAMINE
  24. NITROFUR MAC [Concomitant]
     Active Substance: NITROFURANTOIN
  25. SYRINGE [Concomitant]
     Active Substance: DEVICE

REACTIONS (2)
  - Urinary tract infection [None]
  - Fall [None]

NARRATIVE: CASE EVENT DATE: 201708
